FAERS Safety Report 25562531 (Version 1)
Quarter: 2025Q3

REPORT INFORMATION
  Report Type: Spontaneous
  Country: EU (occurrence: EU)
  Receive Date: 20250716
  Receipt Date: 20250716
  Transmission Date: 20251021
  Serious: Yes (Other)
  Sender: TEVA
  Company Number: EU-TEVA-VS-3351787

PATIENT
  Age: 49 Year
  Sex: Female

DRUGS (1)
  1. AJOVY [Suspect]
     Active Substance: FREMANEZUMAB-VFRM
     Indication: Product used for unknown indication
     Dosage: 3 INJECTIONS EVERY 3 MONTHS
     Route: 065
     Dates: start: 202208

REACTIONS (2)
  - Constipation [Unknown]
  - Haemorrhoidal haemorrhage [Unknown]
